FAERS Safety Report 8467165-6 (Version None)
Quarter: 2012Q2

REPORT INFORMATION
  Report Type: 
  Country: None (occurrence: None)
  Receive Date: 20120323
  Receipt Date: 20110919
  Transmission Date: 20120825
  Serious: Yes (Hospitalization)
  Sender: FDA-Public Use
  Company Number: 163-21880-11081970

PATIENT
  Age: 66 Year
  Sex: Male
  Weight: 79.3795 kg

DRUGS (17)
  1. DEXAMETHASONE [Concomitant]
  2. ASPIRIN [Concomitant]
  3. REVLIMID [Suspect]
     Indication: MULTIPLE MYELOMA
     Dosage: 25 MG, 1 IN 1 D, PO : 10-15MG, DAILY, PO : 15 MG, DAILY X 21 DAYS, PO : 15 MG, DAILY X 21 DAYS, PO
     Route: 048
     Dates: start: 20110721
  4. REVLIMID [Suspect]
     Indication: MULTIPLE MYELOMA
     Dosage: 25 MG, 1 IN 1 D, PO : 10-15MG, DAILY, PO : 15 MG, DAILY X 21 DAYS, PO : 15 MG, DAILY X 21 DAYS, PO
     Route: 048
     Dates: start: 20070601, end: 20080101
  5. REVLIMID [Suspect]
     Indication: MULTIPLE MYELOMA
     Dosage: 25 MG, 1 IN 1 D, PO : 10-15MG, DAILY, PO : 15 MG, DAILY X 21 DAYS, PO : 15 MG, DAILY X 21 DAYS, PO
     Route: 048
     Dates: start: 20070501
  6. REVLIMID [Suspect]
     Indication: MULTIPLE MYELOMA
     Dosage: 25 MG, 1 IN 1 D, PO : 10-15MG, DAILY, PO : 15 MG, DAILY X 21 DAYS, PO : 15 MG, DAILY X 21 DAYS, PO
     Route: 048
     Dates: start: 20110719, end: 20110701
  7. LUNESTA [Concomitant]
  8. RESTORIL [Concomitant]
  9. CALCIUM + D (OS-CAL) [Concomitant]
  10. NORCO [Concomitant]
  11. PERCOCET [Concomitant]
  12. VALTREX [Concomitant]
  13. AMBIEN [Concomitant]
  14. FLOMAX [Concomitant]
  15. VITAMIN A [Concomitant]
  16. ASCORBIC ACID [Concomitant]
  17. XANAX [Concomitant]

REACTIONS (2)
  - RASH GENERALISED [None]
  - PYREXIA [None]
